FAERS Safety Report 25504012 (Version 2)
Quarter: 2025Q3

REPORT INFORMATION
  Report Type: Spontaneous
  Country: JP (occurrence: JP)
  Receive Date: 20250702
  Receipt Date: 20250718
  Transmission Date: 20251021
  Serious: Yes (Other)
  Sender: ELI LILLY AND COMPANY
  Company Number: JP-ELI_LILLY_AND_COMPANY-JP202506006297

PATIENT
  Age: 91 Year
  Sex: Female

DRUGS (2)
  1. FORTEO [Suspect]
     Active Substance: TERIPARATIDE
     Indication: Osteoporosis
     Dosage: 20 UG, DAILY
     Route: 058
     Dates: start: 20250509, end: 20250605
  2. AZILSARTAN KAMEDOXOMIL [Concomitant]
     Active Substance: AZILSARTAN KAMEDOXOMIL
     Dosage: 10 MG, DAILY

REACTIONS (1)
  - Hyponatraemia [Recovered/Resolved]

NARRATIVE: CASE EVENT DATE: 20250513
